FAERS Safety Report 10177565 (Version 1)
Quarter: 2014Q2

REPORT INFORMATION
  Report Type: Spontaneous
  Country: US (occurrence: US)
  Receive Date: 20140516
  Receipt Date: 20140516
  Transmission Date: 20141212
  Serious: No
  Sender: FDA-Public Use
  Company Number: US-PFIZER INC-2014133479

PATIENT
  Sex: Female
  Weight: 102.4 kg

DRUGS (1)
  1. SERTRALINE HCL [Suspect]
     Indication: ANXIETY
     Dosage: 50 MG, DAILY

REACTIONS (2)
  - Irritability [Recovered/Resolved]
  - Pruritus [Recovered/Resolved]
